FAERS Safety Report 14934835 (Version 1)
Quarter: 2018Q2

REPORT INFORMATION
  Report Type: Spontaneous
  Country: PT (occurrence: PT)
  Receive Date: 20180524
  Receipt Date: 20180524
  Transmission Date: 20180711
  Serious: Yes (Other)
  Sender: FDA-Public Use
  Company Number: PT-GILEAD-2018-0340017

PATIENT
  Age: 62 Year
  Sex: Female

DRUGS (1)
  1. ZYDELIG [Suspect]
     Active Substance: IDELALISIB
     Indication: B-CELL LYMPHOMA
     Dosage: UNK
     Route: 065
     Dates: start: 201706, end: 201804

REACTIONS (5)
  - Cholangitis infective [Unknown]
  - Drug effect incomplete [Not Recovered/Not Resolved]
  - Jaundice cholestatic [Unknown]
  - Diarrhoea [Unknown]
  - Diarrhoea infectious [Unknown]

NARRATIVE: CASE EVENT DATE: 201804
